FAERS Safety Report 5198099-0 (Version None)
Quarter: 2006Q4

REPORT INFORMATION
  Report Type: 
  Country: None (occurrence: None)
  Receive Date: 20061228
  Receipt Date: 20061228
  Transmission Date: 20070319
  Serious: Yes (Life-Threatening, Hospitalization)
  Sender: FDA-Public Use
  Company Number: None

PATIENT
  Age: 63 Year
  Sex: Female

DRUGS (3)
  1. ACYCLOVIR [Suspect]
     Indication: ENCEPHALITIS VIRAL
     Dosage: 1500 MG Q8 IV
     Route: 042
     Dates: start: 20051228, end: 20051231
  2. VANCOMYCIN [Concomitant]
  3. CEFTRIAXONE [Concomitant]

REACTIONS (2)
  - PARTIAL SEIZURES [None]
  - RENAL FAILURE ACUTE [None]
